FAERS Safety Report 23769180 (Version 1)
Quarter: 2024Q2

REPORT INFORMATION
  Report Type: Other
  Country: IT (occurrence: IT)
  Receive Date: 20240422
  Receipt Date: 20240422
  Transmission Date: 20240716
  Serious: Yes (Other)
  Sender: FDA-Public Use
  Company Number: IT-Appco Pharma LLC-2144339

PATIENT
  Age: 35 Year
  Sex: Female
  Weight: 110 kg

DRUGS (4)
  1. LABETALOL HYDROCHLORIDE [Suspect]
     Active Substance: LABETALOL HYDROCHLORIDE
     Indication: Hypertension
     Route: 065
  2. NICARDIPINE HYDROCHLORIDE [Suspect]
     Active Substance: NICARDIPINE HYDROCHLORIDE
     Route: 065
  3. MAGNESIUM SULFATE [Suspect]
     Active Substance: MAGNESIUM SULFATE\MAGNESIUM SULFATE HEPTAHYDRATE
     Route: 065
  4. ARTESUNATE [Suspect]
     Active Substance: ARTESUNATE
     Route: 065

REACTIONS (4)
  - Maternal exposure during pregnancy [Unknown]
  - Premature delivery [Unknown]
  - Superimposed pre-eclampsia [Unknown]
  - Malaria [Unknown]
